FAERS Safety Report 17252018 (Version 2)
Quarter: 2020Q1

REPORT INFORMATION
  Report Type: Report from Study
  Country: None (occurrence: CA)
  Receive Date: 20200109
  Receipt Date: 20200116
  Transmission Date: 20200409
  Serious: Yes (Hospitalization)
  Sender: FDA-Public Use
  Company Number: CA-ABBVIE-19K-028-3205438-00

PATIENT
  Age: 40 Year
  Sex: Female

DRUGS (3)
  1. PREDNISONE. [Suspect]
     Active Substance: PREDNISONE
     Indication: INFLAMMATORY BOWEL DISEASE
     Route: 065
  2. HUMIRA [Suspect]
     Active Substance: ADALIMUMAB
     Indication: CROHN^S DISEASE
     Route: 058
     Dates: start: 20190904
  3. HUMIRA [Suspect]
     Active Substance: ADALIMUMAB
     Route: 058

REACTIONS (14)
  - Nausea [Unknown]
  - Asthenia [Unknown]
  - Pyoderma gangrenosum [Recovering/Resolving]
  - Diarrhoea haemorrhagic [Unknown]
  - Drug ineffective [Unknown]
  - Influenza [Unknown]
  - Inflammatory bowel disease [Recovering/Resolving]
  - Haemoglobin abnormal [Unknown]
  - Fatigue [Unknown]
  - Colitis [Unknown]
  - Blood iron decreased [Unknown]
  - Headache [Unknown]
  - C-reactive protein abnormal [Unknown]
  - Inflammation [Not Recovered/Not Resolved]

NARRATIVE: CASE EVENT DATE: 20191030
